FAERS Safety Report 13936722 (Version 1)
Quarter: 2017Q3

REPORT INFORMATION
  Report Type: Report from Study
  Country: US (occurrence: US)
  Receive Date: 20170905
  Receipt Date: 20170905
  Transmission Date: 20171127
  Serious: No
  Sender: FDA-Public Use
  Company Number: PHEH2017US027883

PATIENT
  Sex: Male

DRUGS (1)
  1. OMNITROPE [Suspect]
     Active Substance: SOMATROPIN
     Indication: DWARFISM
     Dosage: PEN 10 (10MG/1.5MLCARTRIDGE LOT)
     Route: 058
     Dates: start: 201409

REACTIONS (1)
  - Device malfunction [Not Recovered/Not Resolved]
